FAERS Safety Report 24659024 (Version 1)
Quarter: 2024Q4

REPORT INFORMATION
  Report Type: Spontaneous
  Country: RU (occurrence: RU)
  Receive Date: 20241125
  Receipt Date: 20241125
  Transmission Date: 20250115
  Serious: Yes (Other)
  Sender: ORGANON
  Company Number: RU-ORGANON-O2411RUS001036

PATIENT
  Age: 69 Year
  Sex: Female
  Weight: 94 kg

DRUGS (1)
  1. DIPROSPAN [Suspect]
     Active Substance: BETAMETHASONE DIPROPIONATE\BETAMETHASONE SODIUM PHOSPHATE
     Indication: Periarthritis
     Dosage: 1 MILLILITER, ONCE
     Route: 014
     Dates: start: 20241108, end: 20241108

REACTIONS (5)
  - Heart rate increased [Recovering/Resolving]
  - Headache [Recovering/Resolving]
  - Depressed level of consciousness [Recovering/Resolving]
  - Swelling face [Recovering/Resolving]
  - Flushing [Recovering/Resolving]

NARRATIVE: CASE EVENT DATE: 20241108
